FAERS Safety Report 8538753-3 (Version None)
Quarter: 2012Q3

REPORT INFORMATION
  Report Type: 
  Country: None (occurrence: None)
  Receive Date: 20120726
  Receipt Date: 20110920
  Transmission Date: 20120928
  Serious: No
  Sender: FDA-Public Use
  Company Number: US-MYLANLABS-2011S1019858

PATIENT
  Age: 61 Year
  Sex: Female
  Weight: 64.86 kg

DRUGS (7)
  1. TRAMADOL HYDROCHLORIDE [Suspect]
     Indication: NECK PAIN
     Route: 048
     Dates: start: 20110624, end: 20110801
  2. TRAMADOL HYDROCHLORIDE [Suspect]
     Route: 048
     Dates: start: 20110801
  3. ESTROGEN [Concomitant]
     Indication: HORMONE REPLACEMENT THERAPY
  4. LORAZEPAM [Concomitant]
     Indication: INSOMNIA
  5. TRAMADOL HYDROCHLORIDE [Suspect]
     Indication: LIMB DISCOMFORT
     Route: 048
     Dates: start: 20110624, end: 20110801
  6. TRAMADOL HYDROCHLORIDE [Suspect]
     Route: 048
     Dates: start: 20110801
  7. TRAZODONE HYDROCHLORIDE [Concomitant]
     Indication: INSOMNIA

REACTIONS (5)
  - WEIGHT DECREASED [None]
  - NAUSEA [None]
  - DECREASED APPETITE [None]
  - HYPERHIDROSIS [None]
  - NERVOUSNESS [None]
